FAERS Safety Report 20965232 (Version 2)
Quarter: 2022Q2

REPORT INFORMATION
  Report Type: Spontaneous
  Country: VN (occurrence: None)
  Receive Date: 20220616
  Receipt Date: 20220620
  Transmission Date: 20220721
  Serious: Yes (Other)
  Sender: FDA-Public Use
  Company Number: VN-ROCHE-3116682

PATIENT
  Age: 56 Year
  Sex: Female

DRUGS (1)
  1. MABTHERA [Suspect]
     Active Substance: RITUXIMAB
     Indication: Product used for unknown indication
     Dosage: FIRST CYCLE OF MABTHERA IV INTRAVENOUS INFUSION
     Route: 042
     Dates: start: 20220603

REACTIONS (3)
  - Respiratory failure [Unknown]
  - Anaphylactic shock [Unknown]
  - Chills [Unknown]

NARRATIVE: CASE EVENT DATE: 20220603
